FAERS Safety Report 5590705-1 (Version None)
Quarter: 2008Q1

REPORT INFORMATION
  Report Type: 
  Country: None (occurrence: None)
  Receive Date: 20080114
  Receipt Date: 20080103
  Transmission Date: 20080703
  Serious: Yes (Other)
  Sender: FDA-Public Use
  Company Number: US-PFIZER INC-2007073009

PATIENT
  Sex: Male
  Weight: 74.8 kg

DRUGS (6)
  1. CHANTIX [Suspect]
     Indication: SMOKING CESSATION THERAPY
     Dates: start: 20070101, end: 20070101
  2. PYRIDOXINE [Interacting]
  3. ISONIAZID [Interacting]
  4. CYMBALTA [Concomitant]
  5. BUSPAR [Concomitant]
  6. LORTAB [Concomitant]

REACTIONS (3)
  - DRUG INTERACTION [None]
  - HERNIA REPAIR [None]
  - NAUSEA [None]
